FAERS Safety Report 7703407-X (Version None)
Quarter: 2011Q3

REPORT INFORMATION
  Report Type: 
  Country: None (occurrence: None)
  Receive Date: 20110823
  Receipt Date: 20110823
  Transmission Date: 20111222
  Serious: Yes (Life-Threatening, Hospitalization)
  Sender: FDA-Public Use
  Company Number: None

PATIENT
  Age: 46 Year
  Sex: Male
  Weight: 97.5 kg

DRUGS (1)
  1. IBUPROFEN [Suspect]
     Indication: BACK PAIN
     Dosage: 1000MG
     Route: 048

REACTIONS (1)
  - RENAL FAILURE ACUTE [None]
